FAERS Safety Report 9611885 (Version 1)
Quarter: 2013Q4

REPORT INFORMATION
  Report Type: Report from Study
  Country: ES (occurrence: ES)
  Receive Date: 20131010
  Receipt Date: 20131010
  Transmission Date: 20140711
  Serious: Yes (Hospitalization, Other)
  Sender: FDA-Public Use
  Company Number: PHHY2013ES111481

PATIENT
  Age: 43 Year
  Sex: Male

DRUGS (10)
  1. MYCOPHENOLIC ACID [Suspect]
     Indication: IMMUNOSUPPRESSION
     Dosage: 540 MG, QD
     Route: 048
     Dates: start: 20110427, end: 20110429
  2. MYCOPHENOLIC ACID [Interacting]
     Dosage: 540 MG, QD
     Route: 048
     Dates: start: 20110510
  3. TACROLIMUS [Interacting]
     Indication: RENAL TRANSPLANT
     Dosage: 12.5 MG, QD
     Route: 048
     Dates: start: 20110313, end: 20110430
  4. TACROLIMUS [Interacting]
     Dosage: 13 MG, QD
     Route: 048
     Dates: start: 20110501, end: 20110502
  5. TACROLIMUS [Interacting]
     Dosage: 12 MG, QD
     Route: 048
     Dates: start: 20110503, end: 20110510
  6. TACROLIMUS [Interacting]
     Dosage: 13 MG, QD
     Route: 048
     Dates: start: 20110511, end: 20110610
  7. TACROLIMUS [Interacting]
     Dosage: 7 MG, QD
     Route: 048
     Dates: start: 20110611, end: 20110616
  8. PREDNISONE [Concomitant]
     Indication: IMMUNOSUPPRESSION
     Dosage: 7.5 MG DAILY
     Route: 048
     Dates: start: 20110323
  9. ATORVASTATIN [Concomitant]
     Indication: HYPERLIPIDAEMIA
     Dosage: 20 MG DAILY
     Route: 048
     Dates: start: 20110308
  10. BISOPROLOL FUMARATE [Concomitant]
     Indication: HYPERTENSION
     Dosage: 5 MG DAILY
     Route: 048
     Dates: start: 20110205

REACTIONS (3)
  - Leukopenia [Recovered/Resolved]
  - Pyrexia [Unknown]
  - Drug interaction [Unknown]
